FAERS Safety Report 18451527 (Version 1)
Quarter: 2020Q4

REPORT INFORMATION
  Report Type: Spontaneous
  Country: GB (occurrence: GB)
  Receive Date: 20201102
  Receipt Date: 20201102
  Transmission Date: 20210114
  Serious: Yes (Life-Threatening)
  Sender: FDA-Public Use
  Company Number: GB-TEVA-2020-GB-1843300

PATIENT
  Age: 27 Year
  Sex: Female
  Weight: 113 kg

DRUGS (5)
  1. COCODAMOL [Suspect]
     Active Substance: ACETAMINOPHEN\CODEINE PHOSPHATE
     Dosage: 8MG/500MG
     Dates: start: 20201001
  2. OLANZAPINE. [Concomitant]
     Active Substance: OLANZAPINE
     Dosage: 1 DOSAGE FORMS DAILY; AT NIGHT
     Dates: start: 20200414, end: 20200708
  3. NITROFURANTOIN. [Concomitant]
     Active Substance: NITROFURANTOIN
     Dosage: 2DOSAGEFORM
     Dates: start: 20200729, end: 20200801
  4. PRIADEL [Suspect]
     Active Substance: LITHIUM
     Dosage: 1DOSAGEFORM
     Dates: start: 20200708
  5. OMEPRAZOLE. [Concomitant]
     Active Substance: OMEPRAZOLE
     Dosage: 1DOSAGEFORM
     Dates: start: 20200716

REACTIONS (6)
  - Serotonin syndrome [Recovering/Resolving]
  - Vomiting [Unknown]
  - Drug interaction [Unknown]
  - Tremor [Unknown]
  - Hypotension [Unknown]
  - Nausea [Unknown]

NARRATIVE: CASE EVENT DATE: 20201001
